FAERS Safety Report 9960750 (Version 1)
Quarter: 2014Q1

REPORT INFORMATION
  Report Type: Spontaneous
  Country: US (occurrence: US)
  Receive Date: 20140305
  Receipt Date: 20140305
  Transmission Date: 20141002
  Serious: No
  Sender: FDA-Public Use
  Company Number: US-ABBVIE-13P-163-1108343-00

PATIENT
  Sex: 0

DRUGS (1)
  1. HUMIRA [Suspect]
     Indication: INFLAMMATORY BOWEL DISEASE
     Route: 058

REACTIONS (4)
  - Off label use [Unknown]
  - Inflammatory bowel disease [Unknown]
  - Muscle spasms [Recovered/Resolved]
  - Arthralgia [Recovered/Resolved]
